FAERS Safety Report 8121702-X (Version None)
Quarter: 2012Q1

REPORT INFORMATION
  Report Type: 
  Country: None (occurrence: None)
  Receive Date: 20120208
  Receipt Date: 20120202
  Transmission Date: 20120608
  Serious: Yes (Hospitalization, Other)
  Sender: FDA-Public Use
  Company Number: US-AMGEN-USASP2011041951

PATIENT
  Age: 43 Year
  Sex: Female
  Weight: 76 kg

DRUGS (2)
  1. ENBREL [Suspect]
     Indication: RHEUMATOID ARTHRITIS
     Dosage: 25 MG, QWK
     Route: 058
     Dates: start: 20080201
  2. ENBREL [Suspect]
     Dosage: 25 MG, QWK
     Dates: start: 20070101, end: 20110805

REACTIONS (8)
  - DIZZINESS [None]
  - MALAISE [None]
  - ARTHRALGIA [None]
  - VISION BLURRED [None]
  - URINARY TRACT INFECTION [None]
  - UTERINE HAEMORRHAGE [None]
  - VISUAL IMPAIRMENT [None]
  - GAIT DISTURBANCE [None]
